FAERS Safety Report 9255123 (Version 2)
Quarter: 2013Q3

REPORT INFORMATION
  Report Type: Spontaneous
  Country: US (occurrence: US)
  Receive Date: 20130425
  Receipt Date: 20130809
  Transmission Date: 20140515
  Serious: Yes (Other)
  Sender: FDA-Public Use
  Company Number: US-ASTRAZENECA-2013SE27559

PATIENT
  Age: 65 Year
  Sex: Female

DRUGS (9)
  1. NEXIUM [Suspect]
     Indication: GASTROOESOPHAGEAL REFLUX DISEASE
     Dosage: ONCE DAILY
     Route: 048
     Dates: start: 2009, end: 2011
  2. NEXIUM [Suspect]
     Indication: GASTROOESOPHAGEAL REFLUX DISEASE
     Dosage: ONCE DAILY
     Route: 048
     Dates: start: 20100309
  3. PROTONIX [Concomitant]
     Dates: start: 2007, end: 2008
  4. GAVISCON [Concomitant]
     Indication: ABDOMINAL DISCOMFORT
  5. TUMS [Concomitant]
     Indication: ABDOMINAL DISCOMFORT
  6. PREDNISONE [Concomitant]
     Dosage: ONE TO TWO TABLETS EVERY MORNING
  7. PREDNISONE [Concomitant]
     Dates: start: 20100618
  8. SULFASALAZINE [Concomitant]
     Dates: start: 20111006
  9. OMEPRAZOLE [Concomitant]
     Dates: start: 20111004

REACTIONS (13)
  - Cervix carcinoma [Unknown]
  - Osteoporosis [Unknown]
  - Bone density decreased [Unknown]
  - Multiple fractures [Unknown]
  - Bone pain [Unknown]
  - Angina pectoris [Unknown]
  - Arthritis [Unknown]
  - Chronic obstructive pulmonary disease [Unknown]
  - Rheumatoid arthritis [Unknown]
  - Sciatica [Unknown]
  - Fatigue [Unknown]
  - Malaise [Unknown]
  - Depression [Unknown]
